FAERS Safety Report 4490649-2 (Version None)
Quarter: 2004Q4

REPORT INFORMATION
  Report Type: 
  Country: None (occurrence: None)
  Receive Date: 20041102
  Receipt Date: 20040709
  Transmission Date: 20050328
  Serious: Yes (Other)
  Sender: FDA-Public Use
  Company Number: PHEH2004US07445

PATIENT
  Age: 64 Year
  Sex: Male
  Weight: 74 kg

DRUGS (5)
  1. ZOMETA [Suspect]
     Indication: MULTIPLE MYELOMA
     Dosage: 4 MG MONTHLY
     Route: 042
     Dates: start: 20020901, end: 20040301
  2. AREDIA [Suspect]
     Indication: MULTIPLE MYELOMA
     Dosage: UNK, QMO
     Route: 042
     Dates: start: 20040301
  3. ALKERAN [Concomitant]
  4. DECADRON [Concomitant]
  5. PREDNISONE [Concomitant]

REACTIONS (11)
  - CALCINOSIS [None]
  - CONDITION AGGRAVATED [None]
  - DRY SOCKET [None]
  - JAW OPERATION [None]
  - ORAL INFECTION [None]
  - OSTEOMYELITIS [None]
  - PAIN IN JAW [None]
  - RENAL FAILURE [None]
  - TOOTH EXTRACTION [None]
  - TOOTH INFECTION [None]
  - TOOTHACHE [None]
